FAERS Safety Report 21227129 (Version 1)
Quarter: 2022Q3

REPORT INFORMATION
  Report Type: Spontaneous
  Country: US (occurrence: US)
  Receive Date: 20220818
  Receipt Date: 20220818
  Transmission Date: 20221026
  Serious: Yes (Other)
  Sender: FDA-Public Use
  Company Number: US-PFIZER INC-202201060739

PATIENT
  Age: 57 Year
  Sex: Female
  Weight: 102.51 kg

DRUGS (5)
  1. PAXLOVID [Suspect]
     Active Substance: NIRMATRELVIR\RITONAVIR
     Indication: COVID-19 treatment
     Dosage: 3 DF, 2X/DAY (TAKE 3 TABLETS TOGETHER TWO 150 MG OF NIRMATLEVIR TABLETS AND ONE 100 MG RITONAVIR)
     Route: 048
     Dates: start: 20220811
  2. ROSUVASTATIN [Suspect]
     Active Substance: ROSUVASTATIN
     Dosage: UNK
     Dates: start: 20210728
  3. LISINOPRIL [Concomitant]
     Active Substance: LISINOPRIL
     Indication: Blood pressure measurement
     Dosage: UNK
  4. ATENOLOL [Concomitant]
     Active Substance: ATENOLOL
     Indication: Blood pressure measurement
     Dosage: UNK
  5. NIFEDIPINE [Concomitant]
     Active Substance: NIFEDIPINE
     Indication: Blood pressure measurement
     Dosage: UNK

REACTIONS (6)
  - Rhabdomyolysis [Unknown]
  - Choking sensation [Unknown]
  - Pain in extremity [Unknown]
  - Throat tightness [Unknown]
  - Dysphagia [Unknown]
  - Myalgia [Unknown]

NARRATIVE: CASE EVENT DATE: 20220801
